FAERS Safety Report 5709489-9 (Version None)
Quarter: 2008Q2

REPORT INFORMATION
  Report Type: 
  Country: None (occurrence: None)
  Receive Date: 20080417
  Receipt Date: 20080417
  Transmission Date: 20081010
  Serious: Yes (Other)
  Sender: FDA-Public Use
  Company Number: None

PATIENT
  Sex: Female
  Weight: 63.5036 kg

DRUGS (1)
  1. NAPROXEN [Suspect]
     Indication: JOINT SPRAIN
     Dosage: 1 TABLET TWICE DAY AS NEEDED
     Dates: start: 20070514, end: 20070624

REACTIONS (1)
  - ALOPECIA [None]
